FAERS Safety Report 19938020 (Version 1)
Quarter: 2021Q4

REPORT INFORMATION
  Report Type: Spontaneous
  Country: US (occurrence: US)
  Receive Date: 20211011
  Receipt Date: 20211011
  Transmission Date: 20220303
  Serious: No
  Sender: FDA-Public Use
  Company Number: US-ROCHE-2703336

PATIENT
  Sex: Male

DRUGS (2)
  1. ZELBORAF [Suspect]
     Active Substance: VEMURAFENIB
     Indication: Neuroendocrine carcinoma
     Dosage: 4 TABLETS
     Route: 048
     Dates: start: 20200923
  2. COTELLIC [Suspect]
     Active Substance: COBIMETINIB
     Indication: Neuroendocrine carcinoma
     Dosage: 3 TABLETS
     Route: 048
     Dates: start: 202010

REACTIONS (5)
  - Visual impairment [Unknown]
  - Contusion [Unknown]
  - Haemorrhage [Unknown]
  - Intentional product use issue [Unknown]
  - Off label use [Unknown]
